FAERS Safety Report 4811057-8 (Version None)
Quarter: 2005Q4

REPORT INFORMATION
  Report Type: 
  Country: None (occurrence: None)
  Receive Date: 20051025
  Receipt Date: 20051013
  Transmission Date: 20060501
  Serious: Yes (Disabling, Other)
  Sender: FDA-Public Use
  Company Number: 2005142211

PATIENT
  Sex: Female
  Weight: 104.3273 kg

DRUGS (13)
  1. CELEBREX [Suspect]
     Indication: ARTHRITIS
     Dosage: 200 MG (200 MG, 1 IN 1 D)
  2. LIPITOR [Suspect]
     Indication: BLOOD CHOLESTEROL INCREASED
     Dosage: 40 MG (40 MG, 1 IN 1 D)
  3. ALL OTHER THERAPEUTIC PRODUCTS (ALL OTHER THERAPEUTIC PRODUCTS) [Suspect]
     Indication: HEPATITIS
  4. HUMIRA (ADALIMUMAB) [Concomitant]
  5. PROVIGIL [Concomitant]
  6. NEXIUM [Concomitant]
  7. CYMBALTA [Concomitant]
  8. BETA BLOCKING AGENTS AND THIAZIDES (BETA BLOCKING AGENTS AND THIAZIDES [Concomitant]
  9. PREMARIN [Concomitant]
  10. FLEXERIL [Concomitant]
  11. AMITRIPTYLINE HCL [Concomitant]
  12. CHLORZOXAZONE [Concomitant]
  13. PREDNISONE [Concomitant]

REACTIONS (8)
  - AUTOIMMUNE HEPATITIS [None]
  - BLOOD CHOLESTEROL INCREASED [None]
  - CHRONIC FATIGUE SYNDROME [None]
  - DRUG EFFECT DECREASED [None]
  - HEPATITIS C [None]
  - IMMUNOLOGY TEST ABNORMAL [None]
  - PAIN [None]
  - RHEUMATOID FACTOR INCREASED [None]
